FAERS Safety Report 6804131-8 (Version None)
Quarter: 2010Q2

REPORT INFORMATION
  Report Type: 
  Country: None (occurrence: None)
  Receive Date: 20100628
  Receipt Date: 20070823
  Transmission Date: 20101027
  Serious: No
  Sender: FDA-Public Use
  Company Number: US-PFIZER INC-2006118892

PATIENT
  Sex: Female
  Weight: 63.5 kg

DRUGS (5)
  1. XALATAN [Suspect]
     Route: 047
     Dates: start: 20060501, end: 20060630
  2. VITAMIN C [Concomitant]
  3. VITAMIN B6 [Concomitant]
  4. VITAMIN B-12 [Concomitant]
  5. PEPCID [Concomitant]

REACTIONS (5)
  - EYE DISCHARGE [None]
  - EYE DISORDER [None]
  - EYE SWELLING [None]
  - EYELID DISORDER [None]
  - HYPERSENSITIVITY [None]
